FAERS Safety Report 11264532 (Version 2)
Quarter: 2015Q3

REPORT INFORMATION
  Report Type: Spontaneous
  Country: IT (occurrence: IT)
  Receive Date: 20150713
  Receipt Date: 20150723
  Transmission Date: 20151125
  Serious: Yes (Other)
  Sender: FDA-Public Use
  Company Number: IT-ACCORD-031973

PATIENT
  Age: 61 Year
  Sex: Female

DRUGS (3)
  1. GEMCITABINE/GEMCITABINE HYDROCHLORIDE [Suspect]
     Active Substance: GEMCITABINE\GEMCITABINE HYDROCHLORIDE
     Indication: OVARIAN CANCER
     Dosage: GEMCITABINE WAS ADMINISTERED IN BAXTER BAG (BATCH NUMBER:150514K3101; EXPIRE DATE: 09-JUL-2015
     Route: 042
     Dates: start: 20150515, end: 20150618
  2. CARBOPLATIN. [Concomitant]
     Active Substance: CARBOPLATIN
  3. AVASTIN [Concomitant]
     Active Substance: BEVACIZUMAB

REACTIONS (1)
  - Thrombocytosis [Unknown]

NARRATIVE: CASE EVENT DATE: 20150618
